FAERS Safety Report 22304082 (Version 2)
Quarter: 2025Q2

REPORT INFORMATION
  Report Type: Spontaneous
  Country: CZ (occurrence: CZ)
  Receive Date: 20230510
  Receipt Date: 20250529
  Transmission Date: 20250717
  Serious: Yes (Life-Threatening, Hospitalization, Other)
  Sender: MYLAN
  Company Number: CZ-Accord-304790

PATIENT
  Age: 73 Year
  Sex: Female
  Weight: 60 kg

DRUGS (42)
  1. GEMCITABINE [Suspect]
     Active Substance: GEMCITABINE
     Indication: Diffuse large B-cell lymphoma stage IV
     Dates: start: 20230223, end: 20230223
  2. GEMCITABINE [Suspect]
     Active Substance: GEMCITABINE
     Dates: start: 20230309, end: 20230309
  3. OXALIPLATIN [Suspect]
     Active Substance: OXALIPLATIN
     Indication: Diffuse large B-cell lymphoma stage IV
     Dates: start: 20230223, end: 20230223
  4. OXALIPLATIN [Suspect]
     Active Substance: OXALIPLATIN
     Dates: start: 20230309, end: 20230309
  5. EPCORITAMAB [Suspect]
     Active Substance: EPCORITAMAB
     Indication: Diffuse large B-cell lymphoma stage IV
     Dosage: 0.16 MILLIGRAM, QD, PRIMING DOSE, SINGLE
     Dates: start: 20230223, end: 20230223
  6. EPCORITAMAB [Suspect]
     Active Substance: EPCORITAMAB
     Dosage: 0.8 MILLIGRAM, QD, INTERMEDIATE DOSE, SINGLE
     Dates: start: 20230302, end: 20230302
  7. EPCORITAMAB [Suspect]
     Active Substance: EPCORITAMAB
     Dosage: 48 MILLIGRAM, QW, 48 MILLIGRAM, FULL DOSE, WEEKL
     Dates: start: 20230309, end: 20230309
  8. PREDNISONE [Concomitant]
     Active Substance: PREDNISONE
     Dates: start: 20230224, end: 20230226
  9. PREDNISONE [Concomitant]
     Active Substance: PREDNISONE
     Dates: start: 20230303, end: 20230305
  10. LACTULOSE [Concomitant]
     Active Substance: LACTULOSE
  11. FENTANYL [Concomitant]
     Active Substance: FENTANYL
  12. NADROPARIN CALCIUM [Concomitant]
     Active Substance: NADROPARIN CALCIUM
  13. SOLU-MEDROL [Concomitant]
     Active Substance: METHYLPREDNISOLONE SODIUM SUCCINATE
     Dates: start: 20230223, end: 20230223
  14. SOLU-MEDROL [Concomitant]
     Active Substance: METHYLPREDNISOLONE SODIUM SUCCINATE
     Dates: start: 20230302, end: 20230302
  15. Paralen [Concomitant]
     Dates: start: 20230223, end: 20230223
  16. Paralen [Concomitant]
     Dates: start: 20230302, end: 20230302
  17. Paralen [Concomitant]
     Dates: start: 20230309, end: 20230309
  18. URSODIOL [Concomitant]
     Active Substance: URSODIOL
  19. FENOTEROL HYDROBROMIDE\IPRATROPIUM BROMIDE [Concomitant]
     Active Substance: FENOTEROL HYDROBROMIDE\IPRATROPIUM BROMIDE
     Dates: start: 20230223, end: 20230223
  20. SPIRONOLACTONE [Concomitant]
     Active Substance: SPIRONOLACTONE
  21. Vigantol [Concomitant]
  22. SERTRALINE HYDROCHLORIDE [Concomitant]
     Active Substance: SERTRALINE HYDROCHLORIDE
  23. CALCIUM CARBONATE [Concomitant]
     Active Substance: CALCIUM CARBONATE
  24. COTRIMOXAZOLE [Concomitant]
     Active Substance: SULFAMETHOXAZOLE\TRIMETHOPRIM
  25. QUETIAPINE FUMARATE [Concomitant]
     Active Substance: QUETIAPINE FUMARATE
  26. CONTROLOC [Concomitant]
     Active Substance: PANTOPRAZOLE SODIUM
  27. VALACYCLOVIR HYDROCHLORIDE [Concomitant]
     Active Substance: VALACYCLOVIR HYDROCHLORIDE
  28. BISULEPIN [Concomitant]
     Active Substance: BISULEPIN
     Dates: start: 20230223, end: 20230223
  29. METOPROLOL [Concomitant]
     Active Substance: METOPROLOL
     Dates: start: 20230302, end: 20230308
  30. CIPROFLOXACIN [Concomitant]
     Active Substance: CIPROFLOXACIN
  31. CORDARONE [Concomitant]
     Active Substance: AMIODARONE HYDROCHLORIDE
     Dates: start: 20230307, end: 20230321
  32. METOCLOPRAMIDE HYDROCHLORIDE [Concomitant]
     Active Substance: METOCLOPRAMIDE HYDROCHLORIDE
  33. FUROSEMIDE [Concomitant]
     Active Substance: FUROSEMIDE
     Dates: start: 20230309, end: 20230321
  34. POTASSIUM CHLORIDE [Concomitant]
     Active Substance: POTASSIUM CHLORIDE
     Dates: start: 20230225, end: 20230228
  35. LYRICA [Concomitant]
     Active Substance: PREGABALIN
  36. METAMIZOLE [Concomitant]
     Active Substance: METAMIZOLE
     Dates: start: 20230228, end: 20230228
  37. ALLOPURINOL [Concomitant]
     Active Substance: ALLOPURINOL
     Dates: start: 20230220, end: 20230319
  38. ONDANSETRON [Concomitant]
     Active Substance: ONDANSETRON
     Dates: start: 20230223, end: 20230421
  39. PIPERACILLIN AND TAZOBACTAM [Concomitant]
     Active Substance: PIPERACILLIN SODIUM\TAZOBACTAM SODIUM
     Dates: start: 20230309, end: 20230313
  40. TOCILIZUMAB [Concomitant]
     Active Substance: TOCILIZUMAB
     Dates: start: 20230223, end: 20230223
  41. VEKLURY [Concomitant]
     Active Substance: REMDESIVIR
     Dates: start: 20230310, end: 20230314
  42. OXYGEN [Concomitant]
     Active Substance: OXYGEN
     Dates: start: 20230223, end: 20230223

REACTIONS (2)
  - Neutropenia [Recovered/Resolved]
  - COVID-19 [Unknown]

NARRATIVE: CASE EVENT DATE: 20230227
